FAERS Safety Report 19162309 (Version 2)
Quarter: 2022Q4

REPORT INFORMATION
  Report Type: Spontaneous
  Country: US (occurrence: US)
  Receive Date: 20210420
  Receipt Date: 20221008
  Transmission Date: 20230113
  Serious: Yes (Other)
  Sender: FDA-Public Use
  Company Number: US-PURDUE-USA-2020-0190232

PATIENT
  Sex: Male

DRUGS (8)
  1. DILAUDID [Suspect]
     Active Substance: HYDROMORPHONE HYDROCHLORIDE
     Indication: Product used for unknown indication
     Dosage: 0.5 MG, (IVF EVERY 10 MIN)
     Route: 048
     Dates: start: 20171011
  2. HYDROCODONE BITARTRATE AND ACETAMINOPHEN [Suspect]
     Active Substance: ACETAMINOPHEN\HYDROCODONE BITARTRATE
     Indication: Pain
     Dosage: 10/325 MG (1 TAB )
     Route: 048
  3. HYDROCODONE BITARTRATE AND ACETAMINOPHEN [Suspect]
     Active Substance: ACETAMINOPHEN\HYDROCODONE BITARTRATE
     Dosage: 10/325 MG
     Route: 048
  4. HYDROCODONE BITARTRATE AND ACETAMINOPHEN [Suspect]
     Active Substance: ACETAMINOPHEN\HYDROCODONE BITARTRATE
     Dosage: 5/325 MG
     Route: 048
  5. TRAMADOL [Suspect]
     Active Substance: TRAMADOL
     Indication: Pain
     Dosage: 50 MG, (1 TO 2 TABLETS FOUR TIMES A DAY IF NEEDED)
     Route: 048
  6. TRAMADOL [Suspect]
     Active Substance: TRAMADOL
     Dosage: 50 MG, (1 TABLET TWO TIMES A DAY IF NEEDED)
     Route: 048
  7. TRAMADOL [Suspect]
     Active Substance: TRAMADOL
     Dosage: 50 MGV (IF NEEDED)
     Route: 048
  8. NORCO [Suspect]
     Active Substance: ACETAMINOPHEN\HYDROCODONE BITARTRATE
     Indication: Product used for unknown indication
     Dosage: 5/325 MG
     Route: 048
     Dates: start: 20171011

REACTIONS (1)
  - Drug dependence [Unknown]
